FAERS Safety Report 21849650 (Version 2)
Quarter: 2023Q1

REPORT INFORMATION
  Report Type: Spontaneous
  Country: US (occurrence: US)
  Receive Date: 20230111
  Receipt Date: 20230314
  Transmission Date: 20230417
  Serious: No
  Sender: FDA-Public Use
  Company Number: US-BAYER-2023P001401

PATIENT
  Age: 56 Year
  Sex: Female
  Weight: 67.1 kg

DRUGS (1)
  1. CLIMARA [Suspect]
     Active Substance: ESTRADIOL
     Dosage: UNK
     Route: 062
     Dates: start: 2022, end: 202212

REACTIONS (2)
  - Vaginal haemorrhage [Recovered/Resolved]
  - Breast tenderness [Recovered/Resolved]

NARRATIVE: CASE EVENT DATE: 20220101
